FAERS Safety Report 16030618 (Version 5)
Quarter: 2020Q2

REPORT INFORMATION
  Report Type: Spontaneous
  Country: US (occurrence: US)
  Receive Date: 20190304
  Receipt Date: 20200403
  Transmission Date: 20200713
  Serious: Yes (Other)
  Sender: FDA-Public Use
  Company Number: US-PFIZER INC-2019088942

PATIENT
  Age: 72 Year
  Sex: Female

DRUGS (2)
  1. SOMAVERT [Suspect]
     Active Substance: PEGVISOMANT
     Dosage: UNK
     Dates: start: 20170606
  2. SOMAVERT [Suspect]
     Active Substance: PEGVISOMANT
     Indication: INSULIN-LIKE GROWTH FACTOR INCREASED
     Dosage: 15 MG, DAILY

REACTIONS (6)
  - Arthralgia [Unknown]
  - Nasopharyngitis [Unknown]
  - Neoplasm [Unknown]
  - Intentional product misuse [Unknown]
  - Needle issue [Unknown]
  - Dysphonia [Unknown]
